FAERS Safety Report 9826203 (Version 3)
Quarter: 2014Q3

REPORT INFORMATION
  Report Type: Spontaneous
  Country: US (occurrence: US)
  Receive Date: 20140117
  Receipt Date: 20140813
  Transmission Date: 20150326
  Serious: Yes (Hospitalization, Other)
  Sender: FDA-Public Use
  Company Number: US-009507513-1401USA004755

PATIENT
  Sex: Female

DRUGS (1)
  1. NUVARING [Suspect]
     Active Substance: ETHINYL ESTRADIOL\ETONOGESTREL
     Indication: CONTRACEPTION
     Dosage: UNK UNK, QM
     Route: 067
     Dates: start: 2005, end: 20100125

REACTIONS (8)
  - Diabetes mellitus [Unknown]
  - Menorrhagia [Unknown]
  - Phlebitis [Unknown]
  - Hypertension [Unknown]
  - Pulmonary embolism [Unknown]
  - Hypokalaemia [Recovered/Resolved]
  - Sinus bradycardia [Unknown]
  - Metrorrhagia [Unknown]

NARRATIVE: CASE EVENT DATE: 201001
